FAERS Safety Report 9356780 (Version 1)
Quarter: 2013Q2

REPORT INFORMATION
  Report Type: Spontaneous
  Country: GR (occurrence: GR)
  Receive Date: 20130619
  Receipt Date: 20130619
  Transmission Date: 20140414
  Serious: Yes (Other)
  Sender: FDA-Public Use
  Company Number: GR-UCBSA-088605

PATIENT
  Age: 73 Year
  Sex: Male

DRUGS (2)
  1. VIMPAT [Suspect]
     Indication: EPILEPSY
     Route: 042
  2. VIMPAT [Suspect]
     Indication: EPILEPSY
     Route: 048

REACTIONS (1)
  - Mental disorder [Recovered/Resolved]
